FAERS Safety Report 5269791-4 (Version None)
Quarter: 2007Q1

REPORT INFORMATION
  Report Type: 
  Country: None (occurrence: None)
  Receive Date: 20061218
  Receipt Date: 20060928
  Transmission Date: 20070707
  Serious: Yes (Other)
  Sender: FDA-Public Use
  Company Number: US200609007168

PATIENT
  Age: 48 Year
  Sex: Male
  Weight: 104 kg

DRUGS (4)
  1. HUMALOG [Suspect]
     Indication: DIABETES MELLITUS INSULIN-DEPENDENT
     Dates: start: 20060101
  2. LIPITOR [Concomitant]
  3. ENALAPRIL MALEATE [Concomitant]
  4. TOPROLX XL (METOPROLOL SUCCINATE) [Concomitant]

REACTIONS (2)
  - BLOOD GLUCOSE INCREASED [None]
  - HYPOGLYCAEMIA [None]
